FAERS Safety Report 18284707 (Version 2)
Quarter: 2021Q1

REPORT INFORMATION
  Report Type: Spontaneous
  Country: US (occurrence: US)
  Receive Date: 20200918
  Receipt Date: 20210323
  Transmission Date: 20210419
  Serious: No
  Sender: FDA-Public Use
  Company Number: US-MYLANLABS-2020M1077578

PATIENT
  Sex: Female

DRUGS (1)
  1. FENTANYL TRANSDERMAL SYSTEM [Suspect]
     Active Substance: FENTANYL
     Indication: ABDOMINAL PAIN UPPER
     Dosage: UNK
     Route: 062

REACTIONS (4)
  - Drug ineffective for unapproved indication [Unknown]
  - Product colour issue [Unknown]
  - Product quality issue [Unknown]
  - Wrong technique in product usage process [Unknown]
